FAERS Safety Report 9543840 (Version 3)
Quarter: 2013Q4

REPORT INFORMATION
  Report Type: Spontaneous
  Country: US (occurrence: US)
  Receive Date: 20130923
  Receipt Date: 20131204
  Transmission Date: 20140711
  Serious: Yes (Death, Hospitalization)
  Sender: FDA-Public Use
  Company Number: US-GLAXOSMITHKLINE-A1042269A

PATIENT
  Age: 56 Year
  Sex: Female

DRUGS (9)
  1. TYKERB [Suspect]
     Indication: BREAST CANCER
     Dosage: 5TAB PER DAY
     Route: 048
     Dates: start: 20130807, end: 20130915
  2. ATENOLOL [Concomitant]
  3. ZANTAC [Concomitant]
  4. POTASSIUM CHLORIDE [Concomitant]
  5. HERCEPTIN [Concomitant]
  6. VALIUM [Concomitant]
  7. DILAUDID [Concomitant]
  8. PROBIOTIC [Concomitant]
  9. DEXAMETHASONE [Concomitant]

REACTIONS (1)
  - Disease progression [Fatal]
